FAERS Safety Report 7748767-9 (Version None)
Quarter: 2011Q3

REPORT INFORMATION
  Report Type: 
  Country: None (occurrence: None)
  Receive Date: 20110914
  Receipt Date: 20110903
  Transmission Date: 20111222
  Serious: Yes (Other)
  Sender: FDA-Public Use
  Company Number: SA-PAR PHARMACEUTICAL, INC-2011SCPR003220

PATIENT

DRUGS (5)
  1. METHOTREXATE [Suspect]
     Indication: CHEMOTHERAPY
     Dosage: UNK, UNKNOWN
     Route: 065
  2. VINCRISTINE [Suspect]
     Indication: CHEMOTHERAPY
     Dosage: UNK, UNKNOWN
     Route: 065
  3. DRUG USED IN DIABETES [Concomitant]
     Indication: DIABETES MELLITUS MANAGEMENT
     Dosage: UNK, UNKNOWN
     Route: 048
  4. DEXAMETHASONE [Suspect]
     Indication: CHEMOTHERAPY
     Dosage: UNK, UNKNOWN
     Route: 065
  5. MERCAPTOPURINE [Suspect]
     Indication: CHEMOTHERAPY
     Dosage: UNK, UNKNOWN
     Route: 065

REACTIONS (4)
  - HEPATITIS C [None]
  - HEPATIC FIBROSIS [None]
  - SEPSIS [None]
  - NEUTROPENIA [None]
